FAERS Safety Report 4825094-0 (Version None)
Quarter: 2005Q4

REPORT INFORMATION
  Report Type: 
  Country: None (occurrence: None)
  Receive Date: 20051109
  Receipt Date: 20051109
  Transmission Date: 20060501
  Serious: Yes (Hospitalization)
  Sender: FDA-Public Use
  Company Number: None

PATIENT
  Age: 86 Year
  Sex: Male

DRUGS (1)
  1. WARFARIN     5MG [Suspect]
     Indication: AORTIC VALVE REPLACEMENT
     Dosage: 5MG   DAILY  PO
     Route: 048
     Dates: start: 20050708, end: 20050716

REACTIONS (8)
  - ANAEMIA [None]
  - BUTTOCK PAIN [None]
  - CELLULITIS [None]
  - COMPRESSION FRACTURE [None]
  - HAEMATOMA [None]
  - HAEMORRHAGE [None]
  - INTERNATIONAL NORMALISED RATIO INCREASED [None]
  - SCIATICA [None]
